FAERS Safety Report 9090924 (Version 1)
Quarter: 2013Q1

REPORT INFORMATION
  Report Type: Spontaneous
  Country: IE (occurrence: IE)
  Receive Date: 20130218
  Receipt Date: 20130218
  Transmission Date: 20140127
  Serious: Yes (Other)
  Sender: FDA-Public Use
  Company Number: IE-BAXTER-2013BAX005234

PATIENT
  Sex: Male

DRUGS (7)
  1. GLUCOSE 5% W/V INTRAVENOUS INFUSION BP, POLYOLEFIN/POLYAMIDE BAG [Suspect]
     Indication: PRODUCT USED FOR UNKNOWN INDICATION
     Dates: start: 20120321, end: 20120321
  2. OXALIPLATIN [Suspect]
     Indication: PRODUCT USED FOR UNKNOWN INDICATION
     Route: 065
     Dates: start: 20120321, end: 20120321
  3. DEXAMETHASONE [Concomitant]
     Indication: PREMEDICATION
     Route: 042
     Dates: start: 20120321, end: 20120321
  4. ZOFRAN [Concomitant]
     Indication: PREMEDICATION
     Route: 065
     Dates: start: 20120321, end: 20120321
  5. PIRITON [Concomitant]
     Indication: PREMEDICATION
     Route: 065
     Dates: start: 20120321, end: 20120321
  6. FOLINIC ACID [Concomitant]
     Indication: PREMEDICATION
     Route: 065
     Dates: start: 20120321, end: 20120321
  7. FLUOROURACIL [Concomitant]
     Indication: PREMEDICATION
     Route: 065
     Dates: start: 20120321, end: 20120321

REACTIONS (1)
  - Pruritus [Recovered/Resolved]
